FAERS Safety Report 6431316-5 (Version None)
Quarter: 2009Q4

REPORT INFORMATION
  Report Type: 
  Country: None (occurrence: None)
  Receive Date: 20091106
  Receipt Date: 20091029
  Transmission Date: 20100525
  Serious: Yes (Other)
  Sender: FDA-Public Use
  Company Number: US-PFIZER INC-2009273438

PATIENT
  Age: 57 Year
  Sex: Female
  Weight: 94.8 kg

DRUGS (4)
  1. GEODON [Suspect]
     Indication: BIPOLAR II DISORDER
     Dosage: 80 MG, 2X/DAY
     Dates: start: 20080121
  2. CITALOPRAM [Suspect]
  3. LORAZEPAM [Suspect]
  4. TEGRETOL [Concomitant]

REACTIONS (7)
  - AFFECTIVE DISORDER [None]
  - ANXIETY [None]
  - BIPOLAR DISORDER [None]
  - DEPRESSION [None]
  - HYPOMANIA [None]
  - MOOD SWINGS [None]
  - SUICIDAL IDEATION [None]
